FAERS Safety Report 5197928-4 (Version None)
Quarter: 2006Q4

REPORT INFORMATION
  Report Type: 
  Country: None (occurrence: None)
  Receive Date: 20061228
  Receipt Date: 20061212
  Transmission Date: 20070319
  Serious: Yes (Other)
  Sender: FDA-Public Use
  Company Number: 2006S1000293

PATIENT
  Age: 44 Year
  Sex: Male
  Weight: 113.6 kg

DRUGS (5)
  1. CUBICIN [Suspect]
     Indication: ARTHRITIS BACTERIAL
     Dosage: 540 MG; Q48H
  2. CUBICIN [Suspect]
     Indication: PATHOGEN RESISTANCE
     Dosage: 540 MG; Q48H
  3. CUBICIN [Suspect]
     Indication: STAPHYLOCOCCAL INFECTION
     Dosage: 540 MG; Q48H
  4. VANCOMYCIN [Concomitant]
  5. ZYVOX [Concomitant]

REACTIONS (10)
  - ANTIBODY TEST POSITIVE [None]
  - ARTHRITIS INFECTIVE [None]
  - BLOOD CREATINE PHOSPHOKINASE INCREASED [None]
  - DEEP VEIN THROMBOSIS [None]
  - OEDEMA PERIPHERAL [None]
  - OSTEOMYELITIS [None]
  - PAIN IN EXTREMITY [None]
  - RENAL FAILURE [None]
  - RESPIRATORY FAILURE [None]
  - STAPHYLOCOCCAL INFECTION [None]
